FAERS Safety Report 9419166 (Version 1)
Quarter: 2013Q3

REPORT INFORMATION
  Report Type: Spontaneous
  Country: NL (occurrence: NL)
  Receive Date: 20130725
  Receipt Date: 20130725
  Transmission Date: 20140515
  Serious: Yes (Hospitalization)
  Sender: FDA-Public Use
  Company Number: NL-ELI_LILLY_AND_COMPANY-NL201307004922

PATIENT
  Age: 42 Year
  Sex: Male

DRUGS (3)
  1. ZYPADHERA [Suspect]
     Indication: SCHIZOPHRENIA
     Dosage: 210 MG, 2/M
     Dates: start: 201112
  2. COLECALCIFEROL [Concomitant]
     Dosage: 1 ML, MONTHLY (1/M)
  3. ARTANE [Concomitant]
     Dosage: 2 MG, PRN

REACTIONS (5)
  - Pallor [Recovered/Resolved]
  - Hyperhidrosis [Recovered/Resolved]
  - Dizziness [Recovered/Resolved]
  - Somnolence [Recovered/Resolved]
  - Coordination abnormal [Recovered/Resolved]
